FAERS Safety Report 10177741 (Version 1)
Quarter: 2014Q2

REPORT INFORMATION
  Report Type: Spontaneous
  Country: US (occurrence: US)
  Receive Date: 20140516
  Receipt Date: 20140516
  Transmission Date: 20141212
  Serious: No
  Sender: FDA-Public Use
  Company Number: US-SANOFI-AVENTIS-2013SA050158

PATIENT
  Age: 57 Year
  Sex: Female

DRUGS (2)
  1. APIDRA [Suspect]
     Indication: DIABETES MELLITUS
     Dosage: FREQ.: WITH MEALS?DOSE: 20-25 UNITS
     Route: 058
  2. LANTUS [Suspect]
     Indication: PRODUCT USED FOR UNKNOWN INDICATION
     Dosage: DOSE:80 UNIT(S)
     Route: 058

REACTIONS (2)
  - Visual impairment [Recovered/Resolved]
  - Drug administration error [Unknown]
